FAERS Safety Report 25529227 (Version 2)
Quarter: 2025Q3

REPORT INFORMATION
  Report Type: Spontaneous
  Country: JP (occurrence: JP)
  Receive Date: 20250708
  Receipt Date: 20250903
  Transmission Date: 20251021
  Serious: Yes (Hospitalization)
  Sender: OTSUKA
  Company Number: JP-MMM-Otsuka-78T391LD

PATIENT
  Age: 10 Decade
  Sex: Female

DRUGS (3)
  1. REXULTI [Suspect]
     Active Substance: BREXPIPRAZOLE
     Indication: Dementia Alzheimer^s type
     Dosage: 0.5 MG/DAY
     Route: 048
  2. REXULTI [Suspect]
     Active Substance: BREXPIPRAZOLE
     Indication: Psychomotor hyperactivity
  3. MICARDIS [Concomitant]
     Active Substance: TELMISARTAN
     Indication: Product used for unknown indication
     Route: 048

REACTIONS (2)
  - Cerebral infarction [Recovered/Resolved]
  - Blood pressure increased [Unknown]
